FAERS Safety Report 4553428-3 (Version None)
Quarter: 2005Q1

REPORT INFORMATION
  Report Type: 
  Country: None (occurrence: None)
  Receive Date: 20050112
  Receipt Date: 20040727
  Transmission Date: 20050727
  Serious: Yes (Hospitalization)
  Sender: FDA-Public Use
  Company Number: 2004050714

PATIENT
  Age: 25 Year
  Sex: Male
  Weight: 50 kg

DRUGS (3)
  1. ZIPRASIDONE (CAPS)   (ZIPRASIDONE) [Suspect]
     Indication: SCHIZOPHRENIA
     Dosage: 40 MG (40 MG, 1 IN 1 D), ORAL
     Route: 048
     Dates: start: 20040424, end: 20040617
  2. RISPERDAL [Concomitant]
  3. BIPERIDEN (BIPERIDEN) [Concomitant]

REACTIONS (6)
  - AGGRESSION [None]
  - AKATHISIA [None]
  - ANXIETY [None]
  - INSOMNIA [None]
  - MUSCLE RIGIDITY [None]
  - PSYCHOMOTOR HYPERACTIVITY [None]
